FAERS Safety Report 14804726 (Version 1)
Quarter: 2018Q2

REPORT INFORMATION
  Report Type: Spontaneous
  Country: GB (occurrence: GB)
  Receive Date: 20180425
  Receipt Date: 20180425
  Transmission Date: 20180711
  Serious: Yes (Other)
  Sender: FDA-Public Use
  Company Number: GB-ELI_LILLY_AND_COMPANY-GB201804009250

PATIENT
  Sex: Male

DRUGS (1)
  1. HUMULIN M3 (MIXTURE 30/70) [Suspect]
     Active Substance: INSULIN HUMAN
     Indication: DIABETES MELLITUS
     Dosage: 43 U, EACH MORNING
     Route: 065

REACTIONS (2)
  - Incorrect dose administered [Unknown]
  - Visual impairment [Unknown]
